FAERS Safety Report 5087775-6 (Version None)
Quarter: 2006Q3

REPORT INFORMATION
  Report Type: 
  Country: None (occurrence: None)
  Receive Date: 20060824
  Receipt Date: 20060814
  Transmission Date: 20061208
  Serious: Yes (Other)
  Sender: FDA-Public Use
  Company Number: CH-ROCHE-459402

PATIENT
  Age: 57 Year
  Sex: Female

DRUGS (2)
  1. PEGASYS [Suspect]
     Indication: HEPATITIS C
     Dosage: FORM REPORTED AS VIALS (PRE-FILLED SYRINGES).
     Route: 051
     Dates: start: 20050615
  2. RIBAVIRIN [Suspect]
     Indication: HEPATITIS C
     Route: 048
     Dates: start: 20050615

REACTIONS (3)
  - EYE PAIN [None]
  - VISUAL DISTURBANCE [None]
  - VITREOUS DETACHMENT [None]
